FAERS Safety Report 9471812 (Version 3)
Quarter: 2013Q4

REPORT INFORMATION
  Report Type: Spontaneous
  Country: US (occurrence: None)
  Receive Date: 20130819
  Receipt Date: 20131017
  Transmission Date: 20140711
  Serious: Yes (Other)
  Sender: FDA-Public Use
  Company Number: ACO_37936_2013

PATIENT
  Age: 57 Year
  Sex: Female
  Weight: 56.7 kg

DRUGS (7)
  1. AMPYRA [Suspect]
     Indication: GAIT DISTURBANCE
     Route: 048
     Dates: start: 20130809, end: 20130810
  2. BACLOFEN (BACLOFEN) [Concomitant]
  3. COPAXONE [Concomitant]
  4. FISH OIL (FISH OIL) [Concomitant]
  5. OXYBUTYNIN CHLORIDE (OXYBUTYNIN CHLORIDE) [Concomitant]
  6. METFORMIN (PLANTAGO OVATA) [Concomitant]
  7. VITAMIN B COMPLEX (CALCIUM PANTOTHENATE, NICOTINAMIDE, PYRIDOXINE HYDROCHLORIDE, RIBOFLAVIN, THIAMINE HYDROCHLORIDE) [Concomitant]

REACTIONS (2)
  - Lip swelling [None]
  - Swelling face [None]
